FAERS Safety Report 5017886-2 (Version None)
Quarter: 2006Q2

REPORT INFORMATION
  Report Type: 
  Country: None (occurrence: None)
  Receive Date: 20060602
  Receipt Date: 20060602
  Transmission Date: 20061013
  Serious: Yes (Other)
  Sender: FDA-Public Use
  Company Number: None

PATIENT
  Age: 73 Year
  Sex: Female

DRUGS (1)
  1. TIMOLOL MALEATE [Suspect]
     Indication: GLAUCOMA
     Dosage: 1 DROP BID TOP
     Route: 061
     Dates: start: 20060423, end: 20060508

REACTIONS (3)
  - PHOTOSENSITIVITY REACTION [None]
  - RASH [None]
  - SWELLING FACE [None]
